FAERS Safety Report 4360263-8 (Version None)
Quarter: 2004Q2

REPORT INFORMATION
  Report Type: 
  Country: None (occurrence: None)
  Receive Date: 20040513
  Receipt Date: 20040422
  Transmission Date: 20050107
  Serious: Yes (Life-Threatening)
  Sender: FDA-Public Use
  Company Number: 26520

PATIENT
  Age: 74 Year
  Sex: Female

DRUGS (7)
  1. TRAVATAN [Suspect]
     Route: 047
  2. RISEDRONATE [Concomitant]
  3. TRIMETAZIDINE [Concomitant]
  4. FLUVASTATINE [Concomitant]
  5. CLONAZEPAM [Concomitant]
  6. DEXTROPROPOXYPHENE/ PARACETAMOL [Concomitant]
  7. CALCIUM WITH VITAMIN D [Concomitant]

REACTIONS (2)
  - KNEE OPERATION [None]
  - THROMBOCYTOPENIA [None]
